FAERS Safety Report 21388929 (Version 1)
Quarter: 2022Q3

REPORT INFORMATION
  Report Type: Spontaneous
  Country: AU (occurrence: AU)
  Receive Date: 20220929
  Receipt Date: 20220929
  Transmission Date: 20221027
  Serious: Yes (Hospitalization, Other)
  Sender: FDA-Public Use
  Company Number: AU-BAYER-2022P015233

PATIENT
  Age: 87 Year
  Sex: Female

DRUGS (1)
  1. XARELTO [Suspect]
     Active Substance: RIVAROXABAN
     Indication: Product used for unknown indication
     Dosage: 15 MG, QD
     Route: 048
     Dates: end: 202209

REACTIONS (5)
  - Fall [Unknown]
  - Cerebrovascular accident [Unknown]
  - Malaise [Unknown]
  - Facial paralysis [Unknown]
  - Monoplegia [Unknown]

NARRATIVE: CASE EVENT DATE: 20220908
